FAERS Safety Report 19638210 (Version 5)
Quarter: 2021Q3

REPORT INFORMATION
  Report Type: Spontaneous
  Country: US (occurrence: US)
  Receive Date: 20210730
  Receipt Date: 20210902
  Transmission Date: 20211014
  Serious: Yes (Other)
  Sender: FDA-Public Use
  Company Number: US-PFIZER INC-2021514489

PATIENT
  Age: 78 Year
  Sex: Male
  Weight: 58.05 kg

DRUGS (2)
  1. SULFASALAZINE. [Suspect]
     Active Substance: SULFASALAZINE
     Indication: COLITIS ULCERATIVE
     Dosage: 500 MG, CYCLIC
     Dates: start: 1981
  2. SULFASALAZINE. [Suspect]
     Active Substance: SULFASALAZINE
     Dosage: 2000 MG, DAILY (4 TABLETS DAILY (2 IN THE MORNING, 2 AT NIGHT))
     Dates: start: 19821205

REACTIONS (4)
  - Intentional product use issue [Unknown]
  - Acne [Unknown]
  - Blindness [Unknown]
  - Eye swelling [Unknown]
